FAERS Safety Report 8738884 (Version 3)
Quarter: 2012Q4

REPORT INFORMATION
  Report Type: 
  Country: JP (occurrence: JP)
  Receive Date: 20120823
  Receipt Date: 20121212
  Transmission Date: 20130627
  Serious: Yes (Hospitalization)
  Sender: FDA-Public Use
  Company Number: JP-009507513-1208JPN005598

PATIENT
  Age: 52 Year
  Sex: Male
  Weight: 77 kg

DRUGS (9)
  1. PEGINTRON [Suspect]
     Indication: CHRONIC HEPATITIS C
     Dosage: 1.5 Microgram per kilogram, qw
     Route: 058
     Dates: start: 20120501, end: 20120612
  2. PEGINTRON [Suspect]
     Dosage: 1.5 Microgram per kilogram, qw
     Route: 058
     Dates: start: 20120626, end: 20121023
  3. REBETOL [Suspect]
     Indication: CHRONIC HEPATITIS C
     Dosage: 800 mg, qd
     Route: 048
     Dates: start: 20120501, end: 20120615
  4. REBETOL [Suspect]
     Dosage: 800 mg, qd
     Route: 048
     Dates: start: 20120626, end: 20121023
  5. TELAVIC [Suspect]
     Indication: CHRONIC HEPATITIS C
     Dosage: 2250 milligrams, qd
     Route: 048
     Dates: start: 20120501, end: 20120615
  6. TELAVIC [Suspect]
     Dosage: 1500 milligrams, qd
     Route: 048
     Dates: start: 20120626, end: 20120723
  7. RIBALL [Suspect]
     Indication: HYPERURICAEMIA
     Dosage: 200 mg, qd, POR
     Route: 048
     Dates: start: 20120515, end: 20120611
  8. RIBALL [Suspect]
     Indication: ADVERSE EVENT
  9. TALION (BEPOTASTINE BESYLATE) [Concomitant]
     Indication: PROPHYLAXIS
     Dosage: 20 mg, qd
     Route: 048
     Dates: end: 20121023

REACTIONS (1)
  - Diarrhoea [Recovered/Resolved]
